FAERS Safety Report 24374370 (Version 1)
Quarter: 2024Q3

REPORT INFORMATION
  Report Type: Spontaneous
  Country: US (occurrence: None)
  Receive Date: 20240927
  Receipt Date: 20240927
  Transmission Date: 20241017
  Serious: Yes (Other)
  Sender: Public
  Company Number: None

PATIENT
  Age: 37 Year
  Sex: Female
  Weight: 29.5 kg

DRUGS (1)
  1. SCOPOLAMINE [Suspect]
     Active Substance: SCOPOLAMINE
     Indication: Salivary hypersecretion
     Dosage: OTHER FREQUENCY : EVERY 3 DAYS;?
     Route: 062
     Dates: start: 20240902, end: 20240927

REACTIONS (1)
  - Seizure [None]

NARRATIVE: CASE EVENT DATE: 20240925
